FAERS Safety Report 5818347-0 (Version None)
Quarter: 2008Q3

REPORT INFORMATION
  Report Type: 
  Country: None (occurrence: None)
  Receive Date: 20080718
  Receipt Date: 20080710
  Transmission Date: 20090109
  Serious: Yes (Hospitalization)
  Sender: FDA-Public Use
  Company Number: CHNY2008GB02672

PATIENT
  Age: 47 Year
  Sex: Male
  Weight: 90 kg

DRUGS (5)
  1. OTRIVIN                  (XYLOMETAZOLINE HYDROCHLORIDE) UNKNOWN [Suspect]
     Indication: RHINITIS
     Dosage: NASAL
     Route: 045
     Dates: start: 20080610, end: 20080625
  2. BENDROFLUMETHIAZIDE       (BENDROFLUMETHIAZIDE) [Concomitant]
  3. DOXAZOSIN         (DOXAZOSIN) [Concomitant]
  4. OLMESARTAN MEDOXOMIL [Concomitant]
  5. LEVOTHYROXINE SODIUM [Concomitant]

REACTIONS (1)
  - ARRHYTHMIA [None]
